FAERS Safety Report 4616669-2 (Version None)
Quarter: 2005Q2

REPORT INFORMATION
  Report Type: 
  Country: None (occurrence: None)
  Receive Date: 20050311
  Receipt Date: 20050126
  Transmission Date: 20051028
  Serious: No
  Sender: FDA-Public Use
  Company Number: 2005-00123

PATIENT
  Age: 53 Year
  Sex: Female
  Weight: 73.9 kg

DRUGS (6)
  1. VELCADE [Suspect]
     Indication: MULTIPLE MYELOMA
     Dosage: IV BOLUS
     Route: 040
     Dates: start: 20041101
  2. KYTRIL [Concomitant]
  3. DECADRON [Concomitant]
  4. PERCOCET [Concomitant]
  5. OXYCONTIN [Concomitant]
  6. ATIVAN [Concomitant]

REACTIONS (3)
  - CONSTIPATION [None]
  - PAIN IN EXTREMITY [None]
  - PARAESTHESIA [None]
